FAERS Safety Report 4468060-X (Version None)
Quarter: 2004Q4

REPORT INFORMATION
  Report Type: 
  Country: None (occurrence: None)
  Receive Date: 20041004
  Receipt Date: 20040921
  Transmission Date: 20050328
  Serious: Yes (Life-Threatening)
  Sender: FDA-Public Use
  Company Number: 2004069515

PATIENT
  Age: 35 Year
  Sex: Female

DRUGS (1)
  1. MAGNEX (CEFOPERAZONE, SULBACTAM) [Suspect]
     Indication: CRUSH INJURY
     Dosage: INTRAVENOUS
     Route: 042

REACTIONS (2)
  - BLOOD TEST ABNORMAL [None]
  - LEUKOPENIA [None]
